FAERS Safety Report 4902764-7 (Version None)
Quarter: 2006Q1

REPORT INFORMATION
  Report Type: 
  Country: None (occurrence: None)
  Receive Date: 20060113
  Receipt Date: 20050308
  Transmission Date: 20060701
  Serious: Yes (Other)
  Sender: FDA-Public Use
  Company Number: HQWYE644627AUG04

PATIENT
  Age: 56 Year
  Sex: Female
  Weight: 56.3 kg

DRUGS (4)
  1. PREMPRO [Suspect]
     Indication: HORMONE REPLACEMENT THERAPY
     Dates: start: 19950101
  2. PREMPRO [Suspect]
     Indication: MENOPAUSE
     Dates: start: 19950101
  3. PREMARIN [Suspect]
     Indication: OESTROGEN REPLACEMENT THERAPY
     Dates: start: 19890101
  4. PROVERA [Suspect]
     Indication: HORMONE REPLACEMENT THERAPY
     Dates: start: 19890101, end: 19950101

REACTIONS (1)
  - BREAST CANCER [None]
